FAERS Safety Report 11123491 (Version 5)
Quarter: 2021Q1

REPORT INFORMATION
  Report Type: Spontaneous
  Country: US (occurrence: US)
  Receive Date: 20150519
  Receipt Date: 20210129
  Transmission Date: 20210419
  Serious: Yes (Life-Threatening, Hospitalization, Other)
  Sender: FDA-Public Use
  Company Number: US-JNJFOC-20150509931

PATIENT
  Age: 72 Year
  Sex: Male

DRUGS (3)
  1. XARELTO [Suspect]
     Active Substance: RIVAROXABAN
     Indication: ATRIAL FIBRILLATION
     Route: 048
     Dates: start: 201206, end: 2012
  2. XARELTO [Suspect]
     Active Substance: RIVAROXABAN
     Route: 048
     Dates: start: 2014, end: 201407
  3. XARELTO [Suspect]
     Active Substance: RIVAROXABAN
     Indication: CEREBROVASCULAR ACCIDENT PROPHYLAXIS
     Route: 048
     Dates: start: 20120924, end: 20140128

REACTIONS (5)
  - Shock haemorrhagic [Recovering/Resolving]
  - Weight decreased [Unknown]
  - Biopsy palate [Unknown]
  - Post procedural haemorrhage [Recovering/Resolving]
  - Amnesia [Unknown]

NARRATIVE: CASE EVENT DATE: 20140131
